FAERS Safety Report 5705067-6 (Version None)
Quarter: 2008Q2

REPORT INFORMATION
  Report Type: 
  Country: None (occurrence: None)
  Receive Date: 20080409
  Receipt Date: 20080326
  Transmission Date: 20081010
  Serious: Yes (Death, Life-Threatening, Hospitalization, Other)
  Sender: FDA-Public Use
  Company Number: 2008S1004995

PATIENT
  Age: 47 Year
  Sex: Female

DRUGS (15)
  1. SERTRALINE [Suspect]
     Dosage: 100 MG;DAILY
  2. LINEZOLID [Suspect]
     Dosage: 600 MG;Q12H;ORAL
     Route: 048
  3. ATENOLOL [Concomitant]
  4. BENZONATATE [Concomitant]
  5. CLOPIDOGREL [Concomitant]
  6. EPOGEN [Concomitant]
  7. FAMOTIDINE [Concomitant]
  8. FOSINOPRIL SODIUM [Concomitant]
  9. GABAPENTIN [Concomitant]
  10. INSULIN [Concomitant]
  11. NATEGLINIDE [Concomitant]
  12. PIOGLITAZONE [Concomitant]
  13. SIMVASTATIN [Concomitant]
  14. CALCIUM [Concomitant]
  15. CLONAZEPAM [Concomitant]

REACTIONS (14)
  - ANOXIC ENCEPHALOPATHY [None]
  - CARDIO-RESPIRATORY ARREST [None]
  - COMA [None]
  - CONFUSIONAL STATE [None]
  - COORDINATION ABNORMAL [None]
  - DELIRIUM [None]
  - DIARRHOEA [None]
  - DRUG INTERACTION [None]
  - GANGRENE [None]
  - HYPERTENSION [None]
  - LEG AMPUTATION [None]
  - MYOCLONUS [None]
  - PERITONEAL DIALYSIS [None]
  - TACHYCARDIA [None]
